FAERS Safety Report 21151079 (Version 3)
Quarter: 2022Q3

REPORT INFORMATION
  Report Type: Report from Study
  Country: IL (occurrence: IL)
  Receive Date: 20220729
  Receipt Date: 20220927
  Transmission Date: 20221026
  Serious: Yes (Hospitalization, Other)
  Sender: FDA-Public Use
  Company Number: IL-ABBVIE-22K-082-4485844-00

PATIENT
  Sex: Male

DRUGS (6)
  1. CARBIDOPA\LEVODOPA [Suspect]
     Active Substance: CARBIDOPA\LEVODOPA
     Indication: Parkinson^s disease
     Dosage: CURRENT: MORNING DOSE 18.0 ML, CONTINUOUS DAY 5.0 ML/HOUR, EXTRA DOSE 2.5 ML THERAPY DURATION 16 H
     Route: 050
     Dates: start: 20191020
  2. CARBIDOPA\LEVODOPA [Suspect]
     Active Substance: CARBIDOPA\LEVODOPA
     Dosage: CURRENT: MD 18.0 ML, CONTINUOUS DAY 5.0 ML/HOUR, EXTRA DOSE 2.5 ML?THERAPY DURATION 16 H
     Route: 050
     Dates: start: 20191120
  3. CARBIDOPA\LEVODOPA [Suspect]
     Active Substance: CARBIDOPA\LEVODOPA
     Route: 050
  4. CARBIDOPA\LEVODOPA [Suspect]
     Active Substance: CARBIDOPA\LEVODOPA
     Dosage: MORNING DOSE 16.5ML , CONTINUOUS DOSE 4.8ML/HR , EXTRA DOSE 2.5ML PER DOSE
  5. CARBIDOPA\LEVODOPA [Suspect]
     Active Substance: CARBIDOPA\LEVODOPA
     Route: 050
  6. SINEMET [Concomitant]
     Active Substance: CARBIDOPA\LEVODOPA
     Indication: Product used for unknown indication
     Dosage: AT NIGHT

REACTIONS (16)
  - Intestinal obstruction [Recovered/Resolved]
  - Salivary hypersecretion [Recovering/Resolving]
  - Vomiting [Recovered/Resolved]
  - Dyschezia [Recovering/Resolving]
  - Mood altered [Recovering/Resolving]
  - Headache [Recovering/Resolving]
  - Stoma complication [Recovering/Resolving]
  - Freezing phenomenon [Unknown]
  - Device issue [Unknown]
  - Constipation [Recovering/Resolving]
  - Visual impairment [Unknown]
  - On and off phenomenon [Recovering/Resolving]
  - Dyskinesia [Unknown]
  - Volvulus [Recovered/Resolved]
  - Anxiety [Unknown]
  - Nausea [Recovered/Resolved]

NARRATIVE: CASE EVENT DATE: 20210101
